FAERS Safety Report 7311497-1 (Version None)
Quarter: 2011Q1

REPORT INFORMATION
  Report Type: 
  Country: None (occurrence: None)
  Receive Date: 20110224
  Receipt Date: 20110215
  Transmission Date: 20110831
  Serious: Yes (Other)
  Sender: FDA-Public Use
  Company Number: PHHY2011US12705

PATIENT
  Age: 58 Year
  Sex: Female

DRUGS (2)
  1. CLONAZEPAM [Concomitant]
     Dosage: UNK
  2. FANAPT [Suspect]
     Dosage: 6 MG, BID
     Route: 048

REACTIONS (2)
  - DYSARTHRIA [None]
  - COORDINATION ABNORMAL [None]
